FAERS Safety Report 7612167-2 (Version None)
Quarter: 2011Q3

REPORT INFORMATION
  Report Type: 
  Country: None (occurrence: None)
  Receive Date: 20110715
  Receipt Date: 20110711
  Transmission Date: 20111222
  Serious: Yes (Life-Threatening)
  Sender: FDA-Public Use
  Company Number: FR-ASTRAZENECA-2011SE28002

PATIENT
  Age: 39 Year
  Sex: Female

DRUGS (9)
  1. LIDOCAINE [Suspect]
     Route: 053
     Dates: start: 20110420, end: 20110420
  2. LYRICA [Suspect]
     Indication: PREMEDICATION
     Route: 048
     Dates: start: 20110419, end: 20110420
  3. CEFAMANDOLE SODIUM [Suspect]
     Indication: PREMEDICATION
     Route: 042
     Dates: start: 20110420, end: 20110420
  4. SUFENTANIL CITRATE [Suspect]
     Dosage: 50 UG/ML, 30 UG ONCE
     Route: 042
     Dates: start: 20110420, end: 20110420
  5. DIPRIVAN [Suspect]
     Route: 042
     Dates: start: 20110420, end: 20110420
  6. NAROPIN [Suspect]
     Route: 053
     Dates: start: 20110420, end: 20110420
  7. NIMBEX [Suspect]
     Route: 042
     Dates: start: 20110420, end: 20110420
  8. SUFENTANIL CITRATE [Suspect]
     Dosage: 50 UG/ML, 10 UG ONCE
     Route: 042
     Dates: start: 20110420, end: 20110420
  9. ATARAX [Concomitant]
     Indication: PREMEDICATION

REACTIONS (3)
  - ANAPHYLACTOID SHOCK [None]
  - HYPOTENSION [None]
  - URTICARIA [None]
